FAERS Safety Report 25125036 (Version 1)
Quarter: 2025Q1

REPORT INFORMATION
  Report Type: Report from Study
  Country: GT (occurrence: GT)
  Receive Date: 20250326
  Receipt Date: 20250326
  Transmission Date: 20250408
  Serious: Yes (Other)
  Sender: JOHNSON AND JOHNSON
  Company Number: GT-JNJFOC-20250210107

PATIENT
  Age: 42 Year
  Sex: Male
  Weight: 84 kg

DRUGS (5)
  1. DARZALEX FASPRO [Suspect]
     Active Substance: DARATUMUMAB\HYALURONIDASE-FIHJ
     Indication: Plasma cell myeloma
     Route: 058
  2. CARFILZOMIB [Concomitant]
     Active Substance: CARFILZOMIB
     Indication: Product used for unknown indication
     Route: 065
  3. ZOMETA [Concomitant]
     Active Substance: ZOLEDRONIC ACID
     Indication: Product used for unknown indication
  4. DEXAMETHASONE [Concomitant]
     Active Substance: DEXAMETHASONE
  5. ISOCAR [Concomitant]
     Indication: Product used for unknown indication

REACTIONS (25)
  - Dyspnoea [Recovered/Resolved]
  - Anaphylactic reaction [Unknown]
  - Sinus congestion [Recovered/Resolved]
  - Infusion related reaction [Unknown]
  - Migraine [Unknown]
  - Diarrhoea [Recovering/Resolving]
  - Cough [Recovered/Resolved]
  - Sneezing [Recovered/Resolved]
  - Eye irritation [Recovered/Resolved]
  - Vision blurred [Recovered/Resolved]
  - Hunger [Recovered/Resolved]
  - Fatigue [Unknown]
  - Dizziness [Unknown]
  - Heart rate increased [Unknown]
  - Insomnia [Unknown]
  - Hypotension [Unknown]
  - Fatigue [Unknown]
  - Tachycardia [Unknown]
  - Agitation [Unknown]
  - Irritability [Unknown]
  - Discomfort [Unknown]
  - Headache [Unknown]
  - Influenza [Unknown]
  - Pain [Unknown]
  - Restlessness [Unknown]

NARRATIVE: CASE EVENT DATE: 20250201
